FAERS Safety Report 5858448-4 (Version None)
Quarter: 2008Q3

REPORT INFORMATION
  Report Type: 
  Country: None (occurrence: None)
  Receive Date: 20080826
  Receipt Date: 20080818
  Transmission Date: 20090109
  Serious: Yes (Other)
  Sender: FDA-Public Use
  Company Number: US-PFIZER INC-2008053415

PATIENT
  Age: 73 Year
  Sex: Female

DRUGS (2)
  1. LIPITOR [Suspect]
  2. AMLODIPINE [Concomitant]

REACTIONS (4)
  - ECCHYMOSIS [None]
  - MYALGIA [None]
  - PAIN IN EXTREMITY [None]
  - TENDON RUPTURE [None]
